FAERS Safety Report 21960046 (Version 1)
Quarter: 2023Q1

REPORT INFORMATION
  Report Type: Spontaneous
  Country: DE (occurrence: DE)
  Receive Date: 20230206
  Receipt Date: 20230206
  Transmission Date: 20230417
  Serious: Yes (Death, Hospitalization)
  Sender: FDA-Public Use
  Company Number: DE-DESMA-23DESBI002R

PATIENT
  Age: 47 Year
  Sex: Male
  Weight: 81 kg

DRUGS (14)
  1. HALDOL [Suspect]
     Active Substance: HALOPERIDOL
     Indication: Schizophrenia
     Route: 065
  2. RISPERDAL [Suspect]
     Active Substance: RISPERIDONE
     Indication: Schizophrenia
     Route: 065
  3. CHLORPROTHIXENE [Suspect]
     Active Substance: CHLORPROTHIXENE
     Indication: Schizophrenia
     Route: 065
  4. PERAZINE [Suspect]
     Active Substance: PERAZINE
     Indication: Schizophrenia
     Route: 065
  5. CLOMETHIAZOLE [Suspect]
     Active Substance: CLOMETHIAZOLE
     Indication: Schizophrenia
     Route: 065
  6. BIPERIDEN [Suspect]
     Active Substance: BIPERIDEN
     Indication: Schizophrenia
     Dosage: 8MG/D
     Route: 065
  7. OXAZEPAM [Suspect]
     Active Substance: OXAZEPAM
     Indication: Schizophrenia
     Route: 065
  8. LORMETAZEPAM [Suspect]
     Active Substance: LORMETAZEPAM
     Indication: Schizophrenia
     Route: 065
  9. PHENOBARBITAL [Suspect]
     Active Substance: PHENOBARBITAL
     Indication: Schizophrenia
     Route: 065
  10. AMITRIPTYLINE [Suspect]
     Active Substance: AMITRIPTYLINE
     Indication: Schizophrenia
     Route: 065
  11. DIAZEPAM [Suspect]
     Active Substance: DIAZEPAM
     Indication: Schizophrenia
     Route: 065
  12. OLANZAPINE [Suspect]
     Active Substance: OLANZAPINE
     Indication: Schizophrenia
     Route: 065
  13. PROMETHAZINE [Suspect]
     Active Substance: PROMETHAZINE HYDROCHLORIDE
     Indication: Schizophrenia
     Route: 065
  14. METHIMAZOLE [Concomitant]
     Active Substance: METHIMAZOLE

REACTIONS (3)
  - Ileus paralytic [Fatal]
  - Cardiac failure [Fatal]
  - Cardiotoxicity [Fatal]
